FAERS Safety Report 14618139 (Version 1)
Quarter: 2018Q1

REPORT INFORMATION
  Report Type: Spontaneous
  Country: US (occurrence: US)
  Receive Date: 20180309
  Receipt Date: 20180309
  Transmission Date: 20180509
  Serious: Yes (Other)
  Sender: FDA-Public Use
  Company Number: US-PTC THERAPEUTICS, INC.-US-2018PTC000073

PATIENT

DRUGS (1)
  1. EMFLAZA [Suspect]
     Active Substance: DEFLAZACORT
     Indication: MUSCULAR DYSTROPHY
     Dosage: 21 MG, QD
     Route: 048
     Dates: start: 20171130

REACTIONS (5)
  - Suicidal ideation [Unknown]
  - Emotional disorder [Unknown]
  - Weight increased [Unknown]
  - Frustration tolerance decreased [Unknown]
  - Cushingoid [Unknown]

NARRATIVE: CASE EVENT DATE: 201712
